FAERS Safety Report 7597461-6 (Version None)
Quarter: 2011Q3

REPORT INFORMATION
  Report Type: 
  Country: None (occurrence: None)
  Receive Date: 20110708
  Receipt Date: 20110628
  Transmission Date: 20111222
  Serious: Yes (Hospitalization, Other)
  Sender: FDA-Public Use
  Company Number: PHHY2011US57837

PATIENT
  Sex: Female

DRUGS (2)
  1. VESICARE [Concomitant]
     Dosage: UNK UKN, UNK
  2. VIVELLE-DOT [Suspect]
     Dosage: 0.1 MG,TWICE PER WEEK
     Route: 062

REACTIONS (2)
  - CONVULSION [None]
  - GENERAL PHYSICAL HEALTH DETERIORATION [None]
